FAERS Safety Report 14133994 (Version 2)
Quarter: 2018Q1

REPORT INFORMATION
  Report Type: Spontaneous
  Country: US (occurrence: US)
  Receive Date: 20171027
  Receipt Date: 20180227
  Transmission Date: 20180508
  Serious: No
  Sender: FDA-Public Use
  Company Number: US-PFIZER INC-2017465236

PATIENT
  Age: 76 Year
  Sex: Female

DRUGS (3)
  1. BEE VENOM [Suspect]
     Active Substance: APIS MELLIFERA VENOM
     Dosage: UNK
  2. METRONIDAZOLE. [Suspect]
     Active Substance: METRONIDAZOLE
     Dosage: UNK
  3. KETOROLAC TROMETHAMINE. [Suspect]
     Active Substance: KETOROLAC TROMETHAMINE
     Dosage: UNK

REACTIONS (1)
  - Drug hypersensitivity [Unknown]
